FAERS Safety Report 12257533 (Version 3)
Quarter: 2016Q2

REPORT INFORMATION
  Report Type: Report from Study
  Country: DE (occurrence: DE)
  Receive Date: 20160412
  Receipt Date: 20160503
  Transmission Date: 20160815
  Serious: Yes (Hospitalization)
  Sender: FDA-Public Use
  Company Number: DE-ROCHE-1714083

PATIENT
  Age: 62 Year
  Sex: Female
  Weight: 106 kg

DRUGS (6)
  1. PERTUZUMAB [Suspect]
     Active Substance: PERTUZUMAB
     Indication: BREAST CANCER
     Dosage: DATE OF MOST RECENT DOSE PRIOR TO SAE: 17/FEB/2016, LOADING DOSE
     Route: 042
     Dates: start: 20160217
  2. PERTUZUMAB [Suspect]
     Active Substance: PERTUZUMAB
     Dosage: DATE OF LAST DOSE PRIOR TO SAE: 05/APR/2016, MAINTAINENCE DOSE
     Route: 042
     Dates: start: 20160217
  3. TRASTUZUMAB [Suspect]
     Active Substance: TRASTUZUMAB
     Indication: BREAST CANCER
     Dosage: DATE OF MOST RECENT DOSE PRIOR TO SAE: 17/FEB/2016
     Route: 042
     Dates: start: 20160217
  4. TRASTUZUMAB [Suspect]
     Active Substance: TRASTUZUMAB
     Dosage: DATE OF LAST DOSE PRIOR TO SAE: 05/APR/2016
     Route: 042
     Dates: start: 20160217
  5. PACLITAXEL. [Suspect]
     Active Substance: PACLITAXEL
     Indication: BREAST CANCER
     Dosage: DATE OF LAST DOSE PRIOR TO SAE: 05/APR/2016
     Route: 042
     Dates: start: 20160219
  6. DOXORUBICIN HYDROCHLORIDE. [Suspect]
     Active Substance: DOXORUBICIN HYDROCHLORIDE
     Indication: BREAST CANCER
     Dosage: DATE OF LAST DOSE PRIOR TO SAE: 05/APR/2016
     Route: 042
     Dates: start: 20160219

REACTIONS (2)
  - General physical health deterioration [Recovered/Resolved]
  - Infusion related reaction [Recovered/Resolved]

NARRATIVE: CASE EVENT DATE: 20160217
